FAERS Safety Report 21765848 (Version 1)
Quarter: 2022Q4

REPORT INFORMATION
  Report Type: Spontaneous
  Country: DE (occurrence: DE)
  Receive Date: 20221222
  Receipt Date: 20221222
  Transmission Date: 20230112
  Serious: Yes (Other)
  Sender: FDA-Public Use
  Company Number: DE-BROWN + BURK(UK) LIMITED-ML2022-05527

PATIENT
  Age: 39 Year
  Sex: Female

DRUGS (8)
  1. GABAPENTIN [Suspect]
     Active Substance: GABAPENTIN
     Indication: Neuralgia
     Dosage: UNK
     Route: 048
  2. GABAPENTIN [Suspect]
     Active Substance: GABAPENTIN
     Dosage: UNK
     Route: 048
  3. GABAPENTIN [Suspect]
     Active Substance: GABAPENTIN
     Dosage: UNK
     Route: 048
  4. GABAPENTIN [Suspect]
     Active Substance: GABAPENTIN
     Dosage: UNK
     Route: 048
     Dates: start: 2019
  5. AMITRIPTYLINE [Suspect]
     Active Substance: AMITRIPTYLINE
     Indication: Neuralgia
     Dosage: 25 MILLIGRAM, ONCE A DAY (1 TABLET PER DAY (AT NIGHT)
     Route: 065
     Dates: start: 2019
  6. AMITRIPTYLINE HYDROCHLORIDE [Suspect]
     Active Substance: AMITRIPTYLINE HYDROCHLORIDE
     Indication: Neuralgia
     Dosage: 10 MILLIGRAM (HALF A TABLET IN THE MORNING AND HALF IN THE AFTERNOON)
     Route: 065
     Dates: start: 202109
  7. GABAPENTIN [Suspect]
     Active Substance: GABAPENTIN
     Indication: Neuralgia
     Dosage: UNK
     Route: 048
  8. CHLORMADINONE ACETATE\ETHINYL ESTRADIOL [Concomitant]
     Active Substance: CHLORMADINONE ACETATE\ETHINYL ESTRADIOL
     Indication: Product used for unknown indication
     Dosage: 0.03 MG/2 MG FILM-COATED TABLETS, IN THE EVENING, WITH AT LEAST A 2-HOUR INTERVAL AFTER AND BEFORE T
     Route: 065

REACTIONS (15)
  - Mental impairment [Recovering/Resolving]
  - Heart rate increased [Recovering/Resolving]
  - Sensory disturbance [Recovering/Resolving]
  - Dyskinesia [Recovering/Resolving]
  - Muscle twitching [Recovering/Resolving]
  - Agitation [Recovering/Resolving]
  - Scoliosis [Recovering/Resolving]
  - Nausea [Recovering/Resolving]
  - Tremor [Recovering/Resolving]
  - Neurological symptom [Recovering/Resolving]
  - Nervousness [Recovering/Resolving]
  - Drug withdrawal syndrome [Recovering/Resolving]
  - Confusional state [Recovering/Resolving]
  - Somnolence [Recovering/Resolving]
  - Product quality issue [Unknown]
